FAERS Safety Report 5815767-5 (Version None)
Quarter: 2008Q3

REPORT INFORMATION
  Report Type: 
  Country: None (occurrence: None)
  Receive Date: 20080721
  Receipt Date: 20080716
  Transmission Date: 20090109
  Serious: Yes (Death, Disabling, Other)
  Sender: FDA-Public Use
  Company Number: US-BAYER-US-2007-042050

PATIENT
  Sex: Female

DRUGS (5)
  1. MAGNEVIST [Suspect]
     Indication: NUCLEAR MAGNETIC RESONANCE IMAGING
  2. OPTIMARK [Suspect]
     Indication: DRUG USE FOR UNKNOWN INDICATION
  3. MULTIHANCE [Suspect]
     Indication: DRUG USE FOR UNKNOWN INDICATION
  4. PROHANCE [Suspect]
     Indication: DRUG USE FOR UNKNOWN INDICATION
  5. OMNISCAN [Suspect]
     Indication: DRUG USE FOR UNKNOWN INDICATION

REACTIONS (8)
  - ANHEDONIA [None]
  - ANXIETY [None]
  - EMOTIONAL DISTRESS [None]
  - FIBROSIS [None]
  - INJURY [None]
  - NEPHROGENIC SYSTEMIC FIBROSIS [None]
  - PAIN [None]
  - SKIN FIBROSIS [None]
